FAERS Safety Report 5077696-7 (Version None)
Quarter: 2006Q3

REPORT INFORMATION
  Report Type: 
  Country: None (occurrence: None)
  Receive Date: 20060807
  Receipt Date: 20060728
  Transmission Date: 20061208
  Serious: Yes (Hospitalization)
  Sender: FDA-Public Use
  Company Number: BR-2006-020581

PATIENT
  Age: 46 Year
  Sex: Female
  Weight: 74 kg

DRUGS (2)
  1. MIRENA [Suspect]
     Indication: MENORRHAGIA
     Dosage: 20 UG/DAY, CONT, INTRA-UTERINE
     Route: 015
     Dates: start: 20021001, end: 20060719
  2. VITAMINS WITH MINERALS [Concomitant]

REACTIONS (10)
  - DEVICE BREAKAGE [None]
  - DRUG INEFFECTIVE [None]
  - FLUID RETENTION [None]
  - GENITAL HAEMORRHAGE [None]
  - IUCD COMPLICATION [None]
  - POSTOPERATIVE FEVER [None]
  - SURGERY [None]
  - URINARY INCONTINENCE [None]
  - URINARY TRACT INFECTION [None]
  - WEIGHT INCREASED [None]
